FAERS Safety Report 9783088 (Version 1)
Quarter: 2013Q4

REPORT INFORMATION
  Report Type: Spontaneous
  Country: US (occurrence: US)
  Receive Date: 20131226
  Receipt Date: 20131226
  Transmission Date: 20140711
  Serious: No
  Sender: FDA-Public Use
  Company Number: US-009507513-1312USA010189

PATIENT
  Sex: Female

DRUGS (7)
  1. JANUVIA [Suspect]
     Indication: TYPE 2 DIABETES MELLITUS
     Dosage: 100 MG, QD
     Route: 048
     Dates: start: 201305, end: 20131219
  2. LOVASTATIN [Concomitant]
     Dosage: 400 MG, UNK
  3. GLIPIZIDE [Concomitant]
     Dosage: 10 MG, BID
  4. AMLODIPINE [Concomitant]
     Dosage: 10 MG, QD
  5. CELEBREX [Concomitant]
     Dosage: 200 MG, PRN
  6. ASPIRIN [Concomitant]
     Dosage: 81 MG, UNK
  7. VITAMIN E [Concomitant]
     Dosage: 2000 UNITS, QD

REACTIONS (4)
  - Secretion discharge [Recovering/Resolving]
  - Diarrhoea [Recovering/Resolving]
  - Abdominal pain upper [Recovering/Resolving]
  - Abdominal pain upper [Recovering/Resolving]
